FAERS Safety Report 6067133-8 (Version None)
Quarter: 2009Q1

REPORT INFORMATION
  Report Type: 
  Country: None (occurrence: None)
  Receive Date: 20090205
  Receipt Date: 20090128
  Transmission Date: 20090719
  Serious: Yes (Hospitalization)
  Sender: FDA-Public Use
  Company Number: AT-ROCHE-611119

PATIENT
  Sex: Male
  Weight: 71 kg

DRUGS (5)
  1. CAPECITABINE [Suspect]
     Indication: COLON CANCER
     Dosage: CURRENT CYCLE:1,DOSING AMOUNT AS PER PROTOCOL
     Route: 048
     Dates: start: 20090113
  2. BEVACIZUMAB [Suspect]
     Indication: COLON CANCER
     Dosage: CURRENT CYCLE 1, CURRENT CYCLE:1,DOSING AMOUNT AS PER PROTOCOL
     Route: 042
     Dates: start: 20090113
  3. ASPISOL [Concomitant]
     Route: 042
     Dates: start: 20090126
  4. LOVENOX [Concomitant]
     Route: 058
     Dates: start: 20090126
  5. PANTOPRAZOLE SODIUM [Concomitant]
     Indication: PROPHYLAXIS
     Route: 048
     Dates: start: 20081217

REACTIONS (1)
  - CEREBRAL ISCHAEMIA [None]
